FAERS Safety Report 8878377 (Version 1)
Quarter: 2012Q4

REPORT INFORMATION
  Report Type: 
  Country: US (occurrence: US)
  Receive Date: 20121025
  Receipt Date: 20121025
  Transmission Date: 20130627
  Serious: No
  Sender: FDA-Public Use
  Company Number: US-AMGEN-USASP2012022612

PATIENT
  Age: 64 Year
  Sex: Female
  Weight: 71.2 kg

DRUGS (6)
  1. ENBREL [Suspect]
     Indication: PRODUCT USED FOR UNKNOWN INDICATION
     Dosage: 50 mg, qwk
     Route: 058
  2. METHOTREXATE [Concomitant]
     Dosage: 2.5 mg, UNK
  3. FOLIC ACID [Concomitant]
     Dosage: UNK
  4. LASIX                              /00032601/ [Concomitant]
     Dosage: 20 mg, UNK
  5. POTASSIUM [Concomitant]
     Dosage: UNK
  6. CLARITIN                           /00413701/ [Concomitant]
     Dosage: 10 mg, UNK

REACTIONS (3)
  - Epistaxis [Unknown]
  - Platelet count decreased [Unknown]
  - Sinusitis [Unknown]
